FAERS Safety Report 4723234-5 (Version None)
Quarter: 2005Q3

REPORT INFORMATION
  Report Type: 
  Country: None (occurrence: None)
  Receive Date: 20050719
  Receipt Date: 20040820
  Transmission Date: 20060218
  Serious: Yes (Other)
  Sender: FDA-Public Use
  Company Number: 203290

PATIENT
  Age: 35 Year
  Sex: Female

DRUGS (1)
  1. AVONEX [Suspect]
     Indication: MULTIPLE SCLEROSIS
     Dosage: IM
     Route: 030
     Dates: start: 19981001

REACTIONS (4)
  - ABORTION SPONTANEOUS [None]
  - DEPRESSION [None]
  - MENTAL IMPAIRMENT [None]
  - MYALGIA [None]
